FAERS Safety Report 10530615 (Version 3)
Quarter: 2015Q3

REPORT INFORMATION
  Report Type: Spontaneous
  Country: US (occurrence: US)
  Receive Date: 20141021
  Receipt Date: 20150722
  Transmission Date: 20151125
  Serious: Yes (Other)
  Sender: FDA-Public Use
  Company Number: US-BAYER-2014-155311

PATIENT
  Age: 29 Year
  Sex: Female
  Weight: 63.49 kg

DRUGS (1)
  1. MIRENA [Suspect]
     Active Substance: LEVONORGESTREL
     Indication: CONTRACEPTION
     Dosage: 20 MCG/24HR, CONT
     Route: 015
     Dates: start: 20130807, end: 20141015

REACTIONS (2)
  - Drug ineffective [None]
  - Ectopic pregnancy with contraceptive device [None]

NARRATIVE: CASE EVENT DATE: 201409
